FAERS Safety Report 25902336 (Version 1)
Quarter: 2025Q4

REPORT INFORMATION
  Report Type: Spontaneous
  Country: US (occurrence: US)
  Receive Date: 20251009
  Receipt Date: 20251009
  Transmission Date: 20260119
  Serious: Yes (Other)
  Sender: ALCON
  Company Number: US-ALCON LABORATORIES-ALC2025US005325

PATIENT
  Sex: Female

DRUGS (1)
  1. SYSTANE COMPLETE PF [Suspect]
     Active Substance: PROPYLENE GLYCOL
     Indication: Product used for unknown indication
     Dosage: 1 DROP EACH EYE AS NEEDED OR TWO TO 3 TIMES A WEEK
     Route: 047

REACTIONS (2)
  - Product contamination microbial [Unknown]
  - Product storage error [Unknown]

NARRATIVE: CASE EVENT DATE: 20250924
